FAERS Safety Report 18849069 (Version 3)
Quarter: 2021Q4

REPORT INFORMATION
  Report Type: Report from Study
  Country: JP (occurrence: JP)
  Receive Date: 20210204
  Receipt Date: 20211230
  Transmission Date: 20220303
  Serious: Yes (Death, Life-Threatening, Hospitalization)
  Sender: FDA-Public Use
  Company Number: JP-JNJFOC-A-CH2019-190924

PATIENT
  Age: 86 Year
  Sex: Female

DRUGS (14)
  1. OPSUMIT [Suspect]
     Active Substance: MACITENTAN
     Indication: Pulmonary hypertension
     Dosage: 10 MG, QD, IN THE MORNING
     Route: 048
     Dates: start: 20180914, end: 20200729
  2. PREDNISOLONE [Concomitant]
     Active Substance: PREDNISOLONE
     Indication: Nephrotic syndrome
     Route: 048
     Dates: end: 20200729
  3. SAMSCA [Concomitant]
     Active Substance: TOLVAPTAN
     Indication: Cardiac failure congestive
     Route: 048
     Dates: end: 20200729
  4. EDOXABAN TOSYLATE [Concomitant]
     Active Substance: EDOXABAN TOSYLATE
     Indication: Atrial fibrillation
     Route: 048
     Dates: end: 20200729
  5. VONOPRAZAN FUMARATE [Concomitant]
     Active Substance: VONOPRAZAN FUMARATE
     Indication: Gastric ulcer
     Route: 048
     Dates: end: 20200729
  6. FEBUXOSTAT [Concomitant]
     Active Substance: FEBUXOSTAT
     Indication: Hyperuricaemia
     Route: 048
     Dates: end: 20200729
  7. ALFAROL [Concomitant]
     Active Substance: ALFACALCIDOL
     Indication: Osteoporosis
     Route: 048
     Dates: end: 20200729
  8. SODIUM FERROUS CITRATE [Concomitant]
     Active Substance: SODIUM FERROUS CITRATE
     Indication: Iron deficiency anaemia
     Route: 048
     Dates: end: 20200729
  9. MAGNESIUM OXIDE [Concomitant]
     Active Substance: MAGNESIUM OXIDE
     Indication: Constipation
     Route: 048
     Dates: end: 20200729
  10. TIZANIDINE [Concomitant]
     Active Substance: TIZANIDINE
     Indication: Cervicobrachial syndrome
     Route: 048
     Dates: end: 20200729
  11. LIPIDIL [Concomitant]
     Active Substance: FENOFIBRATE
     Indication: Dyslipidaemia
     Route: 048
     Dates: end: 20200729
  12. ETIZOLAM [Concomitant]
     Active Substance: ETIZOLAM
     Indication: Insomnia
     Route: 048
     Dates: end: 20200729
  13. FUROSEMIDE [Concomitant]
     Active Substance: FUROSEMIDE
     Indication: Cardiac failure congestive
     Route: 048
     Dates: end: 20200729
  14. OXYGEN [Concomitant]
     Active Substance: OXYGEN
     Dosage: DOSE UNKNOWN
     Route: 055

REACTIONS (8)
  - Nephrotic syndrome [Fatal]
  - Asthenia [Fatal]
  - Pneumonia [Recovered/Resolved]
  - Respiratory disorder [Recovered/Resolved]
  - Pyrexia [Recovered/Resolved]
  - Oxygen saturation decreased [Recovered/Resolved]
  - Off label use [Unknown]
  - Product use in unapproved indication [Unknown]

NARRATIVE: CASE EVENT DATE: 20180914
